FAERS Safety Report 8324118 (Version 6)
Quarter: 2013Q1

REPORT INFORMATION
  Report Type: Spontaneous
  Country: US (occurrence: US)
  Receive Date: 20120105
  Receipt Date: 20130111
  Transmission Date: 20140127
  Serious: Yes (Hospitalization, Other)
  Sender: FDA-Public Use
  Company Number: US-ASTRAZENECA-2011SE53429

PATIENT
  Age: 60 Year
  Sex: Female

DRUGS (3)
  1. NEXIUM [Suspect]
     Route: 048
  2. PRILOSEC DELAYED-RELEASE CAPSULES [Suspect]
     Route: 048
  3. CRESTOR [Suspect]
     Route: 048

REACTIONS (20)
  - Thrombosis [Unknown]
  - Gastrooesophageal reflux disease [Unknown]
  - Back pain [Unknown]
  - Medical device complication [Unknown]
  - Fall [Unknown]
  - Malaise [Unknown]
  - Rhinorrhoea [Unknown]
  - Choking [Unknown]
  - Influenza [Unknown]
  - Paranoia [Unknown]
  - Fear [Unknown]
  - Anxiety [Unknown]
  - Burning sensation [Unknown]
  - Vomiting [Unknown]
  - Panic attack [Unknown]
  - Abdominal discomfort [Unknown]
  - Depression [Unknown]
  - Drug dose omission [Unknown]
  - Intentional drug misuse [Unknown]
  - Drug ineffective [Unknown]
